FAERS Safety Report 4845208-6 (Version None)
Quarter: 2005Q4

REPORT INFORMATION
  Report Type: 
  Country: None (occurrence: None)
  Receive Date: 20051125
  Receipt Date: 20051115
  Transmission Date: 20060501
  Serious: Yes (Hospitalization, Other)
  Sender: FDA-Public Use
  Company Number: 2005119505

PATIENT
  Age: 66 Year
  Sex: Female

DRUGS (3)
  1. DETROL LA [Suspect]
     Indication: HYPERTONIC BLADDER
     Dosage: 4 MG (4 MG, 1 IN 1 D), ORAL
     Route: 048
  2. LOTENSIN [Concomitant]
  3. SYNTHROID [Concomitant]

REACTIONS (12)
  - ANKLE FRACTURE [None]
  - ARTHRALGIA [None]
  - DRUG ADMINISTRATION ERROR [None]
  - DRUG INEFFECTIVE [None]
  - FALL [None]
  - HEART RATE INCREASED [None]
  - KNEE ARTHROPLASTY [None]
  - LESION OF SCIATIC NERVE [None]
  - LOWER LIMB FRACTURE [None]
  - NERVE COMPRESSION [None]
  - UNDERDOSE [None]
  - URINARY INCONTINENCE [None]
